FAERS Safety Report 4853544-2 (Version None)
Quarter: 2005Q4

REPORT INFORMATION
  Report Type: 
  Country: None (occurrence: None)
  Receive Date: 20051214
  Receipt Date: 20051129
  Transmission Date: 20060501
  Serious: Yes (Hospitalization)
  Sender: FDA-Public Use
  Company Number: IT-JNJFOC-20051200365

PATIENT
  Age: 64 Year
  Sex: Female

DRUGS (6)
  1. CONTRAMAL [Suspect]
     Indication: MUSCULOSKELETAL PAIN
     Route: 048
  2. APROVEL [Concomitant]
     Indication: HYPERTENSION
     Route: 065
  3. EUTIROX [Concomitant]
     Dosage: 25MCG LEVOTIROXINE
     Route: 065
  4. DICLOFENAC [Concomitant]
     Route: 030
  5. DICLOFENAC [Concomitant]
     Dosage: 75 MG/ML, 1-2 VIALS PER DAY
     Route: 030
  6. INDOXEN [Concomitant]
     Route: 048

REACTIONS (8)
  - CONVULSION [None]
  - HYPERHIDROSIS [None]
  - HYPERTONIA [None]
  - LOSS OF CONSCIOUSNESS [None]
  - RETCHING [None]
  - SYNCOPE [None]
  - URINARY INCONTINENCE [None]
  - VOMITING [None]
